FAERS Safety Report 25750803 (Version 1)
Quarter: 2025Q3

REPORT INFORMATION
  Report Type: Spontaneous
  Country: CA (occurrence: CA)
  Receive Date: 20250902
  Receipt Date: 20250902
  Transmission Date: 20251021
  Serious: Yes (Hospitalization, Other)
  Sender: BAYER HEALTHCARE PHARMACEUTICALS INC.
  Company Number: CA-BAYER-2025A114896

PATIENT
  Age: 42 Year
  Sex: Female

DRUGS (2)
  1. MIRENA [Suspect]
     Active Substance: LEVONORGESTREL
     Indication: Contraception
     Dosage: 20?G/DAY
     Route: 015
     Dates: start: 20161209
  2. MIRENA [Suspect]
     Active Substance: LEVONORGESTREL
     Indication: Genital haemorrhage

REACTIONS (8)
  - Spinal column injury [None]
  - Intestinal obstruction [None]
  - Gastrointestinal motility disorder [None]
  - Vomiting [None]
  - Diarrhoea [None]
  - Weight decreased [None]
  - Cognitive disorder [None]
  - Device use issue [None]

NARRATIVE: CASE EVENT DATE: 20161209
